FAERS Safety Report 4283403-8 (Version None)
Quarter: 2004Q1

REPORT INFORMATION
  Report Type: 
  Country: None (occurrence: None)
  Receive Date: 20040115
  Receipt Date: 20031023
  Transmission Date: 20041129
  Serious: Yes (Other)
  Sender: FDA-Public Use
  Company Number: US-JNJFOC-20030903600

PATIENT
  Age: 45 Year
  Sex: Female
  Weight: 88.2 kg

DRUGS (6)
  1. DOXIL [Suspect]
     Indication: VULVAL CANCER
     Dosage: 80 MG, 1 IN 4 WEEK, INTRAVENOUS
     Route: 042
     Dates: start: 20030401, end: 20030828
  2. ZOFRAN [Concomitant]
  3. DECADRON [Concomitant]
  4. REGLAN [Concomitant]
  5. CARAFATE [Concomitant]
  6. AMBIEN [Concomitant]

REACTIONS (6)
  - ABDOMINAL PAIN [None]
  - DISEASE PROGRESSION [None]
  - GASTROOESOPHAGEAL REFLUX DISEASE [None]
  - NERVOUSNESS [None]
  - OESOPHAGEAL SPASM [None]
  - OESOPHAGITIS [None]
